FAERS Safety Report 4502164-8 (Version None)
Quarter: 2004Q4

REPORT INFORMATION
  Report Type: 
  Country: None (occurrence: None)
  Receive Date: 20041116
  Receipt Date: 20040402
  Transmission Date: 20050328
  Serious: Yes (Death, Life-Threatening, Hospitalization)
  Sender: FDA-Public Use
  Company Number: US-ROCHE-363619

PATIENT
  Age: 82 Year
  Sex: Female
  Weight: 69.1 kg

DRUGS (7)
  1. CAPECITABINE [Suspect]
     Indication: COLORECTAL CANCER METASTATIC
     Dosage: TAKEN DAYS ONE TO FIFTEEN OF A TWENTY ONE DAY CYCLE
     Route: 048
     Dates: start: 20040318, end: 20040914
  2. BEVACIZUMAB [Suspect]
     Indication: COLORECTAL CANCER METASTATIC
     Dosage: GIVEN ON DAY ONE OF A TWENTY ONE DAY CYCLE
     Route: 042
     Dates: start: 20040318, end: 20040914
  3. OXALIPLATIN [Suspect]
     Indication: COLORECTAL CANCER METASTATIC
     Dosage: GIVEN ON DAY ONE OF A TWENTY ONE DAY CYCLE
     Route: 042
     Dates: start: 20040318, end: 20040914
  4. LOPID [Concomitant]
  5. MULTIVITAMIN [Concomitant]
  6. CALCIUM NOS [Concomitant]
  7. QUININE [Concomitant]

REACTIONS (18)
  - ANAEMIA [None]
  - ARTERIOSCLEROSIS [None]
  - BLOOD CREATINE PHOSPHOKINASE MB INCREASED [None]
  - BLOOD POTASSIUM DECREASED [None]
  - BLOOD PRESSURE SYSTOLIC INCREASED [None]
  - CEREBROVASCULAR ACCIDENT [None]
  - CONTUSION [None]
  - DUODENAL ULCER [None]
  - ELECTROCARDIOGRAM ST SEGMENT DEPRESSION [None]
  - EYE DISORDER [None]
  - FALL [None]
  - GASTRITIS [None]
  - GASTROINTESTINAL HAEMORRHAGE [None]
  - HYPERPLASIA [None]
  - ISCHAEMIC CEREBRAL INFARCTION [None]
  - SPINAL COLUMN STENOSIS [None]
  - SPONDYLOSIS [None]
  - X-RAY ABNORMAL [None]
